FAERS Safety Report 15627190 (Version 1)
Quarter: 2018Q4

REPORT INFORMATION
  Report Type: Spontaneous
  Country: US (occurrence: US)
  Receive Date: 20181116
  Receipt Date: 20181116
  Transmission Date: 20190205
  Serious: Yes (Disabling)
  Sender: FDA-Public Use
  Company Number: None

PATIENT
  Age: 67 Year
  Sex: Female
  Weight: 49.5 kg

DRUGS (10)
  1. PRAVASTATIN SODIUM 20 MG [Suspect]
     Active Substance: PRAVASTATIN SODIUM
     Indication: BLOOD CHOLESTEROL INCREASED
     Dosage: ?          QUANTITY:1 TABLET(S);?
     Route: 048
     Dates: start: 20180719, end: 20180921
  2. COQ10 [Concomitant]
     Active Substance: UBIDECARENONE
  3. FISH OIL [Concomitant]
     Active Substance: FISH OIL
  4. ROSUVASTATIN CALCIUM. [Suspect]
     Active Substance: ROSUVASTATIN CALCIUM
     Indication: BLOOD CHOLESTEROL INCREASED
     Dosage: ?          QUANTITY:1 TABLET(S);OTHER FREQUENCY:ONE EVERY OTHER DA;?
     Route: 048
     Dates: start: 20181024, end: 20181107
  5. VITAMIN B12 [Concomitant]
     Active Substance: CYANOCOBALAMIN
  6. PROBIOTICS [Concomitant]
     Active Substance: PROBIOTICS NOS
  7. MAGNESIUM [Concomitant]
     Active Substance: MAGNESIUM
  8. VITAMIN C [Concomitant]
     Active Substance: ASCORBIC ACID
  9. VITAMIN D [Concomitant]
     Active Substance: CHOLECALCIFEROL
  10. BIOTIN [Concomitant]
     Active Substance: BIOTIN

REACTIONS (9)
  - Tinnitus [None]
  - Dizziness [None]
  - Mobility decreased [None]
  - Asthenia [None]
  - Flatulence [None]
  - Diarrhoea [None]
  - Constipation [None]
  - Fungal infection [None]
  - Eructation [None]

NARRATIVE: CASE EVENT DATE: 20181107
